FAERS Safety Report 23517130 (Version 1)
Quarter: 2024Q1

REPORT INFORMATION
  Report Type: 
  Country: None (occurrence: None)
  Receive Date: 20240213
  Receipt Date: 20240213
  Transmission Date: 20240410
  Serious: No
  Sender: FDA-Public Use
  Company Number: ROCHE-3508797

PATIENT
  Weight: 70.37 kg

DRUGS (3)
  1. OCREVUS [Suspect]
     Active Substance: OCRELIZUMAB
     Dosage: NO
     Dates: end: 202308
  2. TOPROL XL [Concomitant]
     Active Substance: METOPROLOL SUCCINATE
  3. TYSABRI [Concomitant]
     Active Substance: NATALIZUMAB

REACTIONS (2)
  - COVID-19 [None]
  - Nasopharyngitis [None]

NARRATIVE: CASE EVENT DATE: 20200101
